FAERS Safety Report 9916865 (Version 1)
Quarter: 2014Q1

REPORT INFORMATION
  Report Type: Spontaneous
  Country: US (occurrence: US)
  Receive Date: 20140221
  Receipt Date: 20140221
  Transmission Date: 20141002
  Serious: No
  Sender: FDA-Public Use
  Company Number: US-PFIZER INC-2014046283

PATIENT
  Age: 10 Year
  Sex: Female
  Weight: 36.28 kg

DRUGS (3)
  1. CHILDRENS ADVIL [Suspect]
     Indication: INFLUENZA LIKE ILLNESS
     Dosage: UNK (1 TEASPOON)
     Dates: start: 20140216
  2. CHILDRENS ADVIL [Suspect]
     Indication: PYREXIA
  3. CHILDRENS ADVIL [Suspect]
     Indication: OROPHARYNGEAL PAIN

REACTIONS (2)
  - Drug ineffective [Unknown]
  - Hallucination [Unknown]
